FAERS Safety Report 5644575-3 (Version None)
Quarter: 2008Q1

REPORT INFORMATION
  Report Type: 
  Country: None (occurrence: None)
  Receive Date: 20080229
  Receipt Date: 20070315
  Transmission Date: 20080703
  Serious: No
  Sender: FDA-Public Use
  Company Number: A0643372A

PATIENT
  Age: 65 Year
  Sex: Female

DRUGS (3)
  1. VALTREX [Suspect]
     Indication: GENITAL HERPES
     Dosage: 1G PER DAY
     Route: 048
     Dates: start: 20060101
  2. ACTONEL [Concomitant]
  3. MULTI-VITAMIN [Concomitant]

REACTIONS (1)
  - ALOPECIA [None]
